FAERS Safety Report 6449334-X (Version None)
Quarter: 2009Q4

REPORT INFORMATION
  Report Type: 
  Country: None (occurrence: None)
  Receive Date: 20091120
  Receipt Date: 20091109
  Transmission Date: 20100525
  Serious: Yes (Other)
  Sender: FDA-Public Use
  Company Number: DE-ELI_LILLY_AND_COMPANY-DE200909003572

PATIENT
  Sex: Female
  Weight: 55 kg

DRUGS (10)
  1. FORTEO [Suspect]
     Dosage: UNK, UNKNOWN
     Route: 058
  2. TILIDIN [Concomitant]
     Dosage: UNK, UNKNOWN
  3. NEXIUM [Concomitant]
     Dosage: UNK, UNKNOWN
  4. LORAZEPAM [Concomitant]
     Dosage: UNK, UNKNOWN
  5. ZOLPIDEM [Concomitant]
     Dosage: UNK, UNKNOWN
  6. MAXALT /01406501/ [Concomitant]
     Dosage: UNK, UNKNOWN
  7. NEURONTIN [Concomitant]
     Dosage: UNK, UNKNOWN
  8. LIORESAL [Concomitant]
     Dosage: UNK, UNKNOWN
  9. IMUREK [Concomitant]
     Dosage: UNK, UNKNOWN
  10. CALCIUM D3 [Concomitant]

REACTIONS (1)
  - BONE METABOLISM DISORDER [None]
